FAERS Safety Report 4375212-6 (Version None)
Quarter: 2004Q2

REPORT INFORMATION
  Report Type: 
  Country: None (occurrence: None)
  Receive Date: 20040607
  Receipt Date: 20030819
  Transmission Date: 20050107
  Serious: Yes (Other)
  Sender: FDA-Public Use
  Company Number: 345021

PATIENT
  Age: 17 Year
  Sex: Male
  Weight: 79.4 kg

DRUGS (1)
  1. ACCUTANE [Suspect]
     Indication: DRUG USE FOR UNKNOWN INDICATION
     Dosage: 40 MG DAILY ORAL
     Route: 048
     Dates: start: 20030701

REACTIONS (6)
  - ADVERSE EVENT [None]
  - CYST [None]
  - INFLAMMATION [None]
  - LEUKOPENIA [None]
  - RASH PUSTULAR [None]
  - THROMBOCYTOPENIA [None]
